FAERS Safety Report 5382234-5 (Version None)
Quarter: 2007Q3

REPORT INFORMATION
  Report Type: 
  Country: None (occurrence: None)
  Receive Date: 20070709
  Receipt Date: 20070627
  Transmission Date: 20080115
  Serious: Yes (Other)
  Sender: FDA-Public Use
  Company Number: SE-PFIZER INC-2007053856

PATIENT
  Age: 56 Year
  Sex: Male
  Weight: 63 kg

DRUGS (2)
  1. LIPITOR [Suspect]
     Route: 048
     Dates: start: 20070413, end: 20070626
  2. MULTIVITAMIN [Concomitant]

REACTIONS (3)
  - DANDRUFF [None]
  - MUSCLE ATROPHY [None]
  - MYALGIA [None]
